FAERS Safety Report 9657751 (Version 2)
Quarter: 2013Q4

REPORT INFORMATION
  Report Type: Spontaneous
  Country: US (occurrence: US)
  Receive Date: 20131030
  Receipt Date: 20131224
  Transmission Date: 20140711
  Serious: Yes (Death, Hospitalization, Other)
  Sender: FDA-Public Use
  Company Number: US-TMC-CABO-13003548

PATIENT
  Age: 77 Year
  Sex: Male

DRUGS (5)
  1. COMETRIQ [Suspect]
     Indication: PROSTATE CANCER
     Dosage: 60 MG, QD
     Route: 048
     Dates: start: 20130926, end: 20131002
  2. DEXAMETHASONE [Concomitant]
  3. LISINOPRIL [Concomitant]
  4. AMLODIPINE [Concomitant]
  5. VICODIN [Concomitant]

REACTIONS (7)
  - Death [Fatal]
  - Fall [Unknown]
  - Head injury [Unknown]
  - Cerebral haemorrhage [Unknown]
  - Subdural haematoma [Unknown]
  - Metastases to central nervous system [Unknown]
  - Off label use [Unknown]
